FAERS Safety Report 7582939-1 (Version None)
Quarter: 2011Q2

REPORT INFORMATION
  Report Type: 
  Country: None (occurrence: None)
  Receive Date: 20110627
  Receipt Date: 20110627
  Transmission Date: 20111010
  Serious: Yes (Other)
  Sender: FDA-Public Use
  Company Number: None

PATIENT
  Age: 37 Year
  Sex: Male
  Weight: 79.8331 kg

DRUGS (1)
  1. SUBOXONE [Suspect]
     Indication: DRUG WITHDRAWAL MAINTENANCE THERAPY
     Dosage: 20 MG ALL TOGETHER SL
     Route: 060
     Dates: start: 20110526

REACTIONS (4)
  - FEAR [None]
  - PAIN [None]
  - NEPHROLITHIASIS [None]
  - DRUG INEFFECTIVE [None]
